FAERS Safety Report 6720414-4 (Version None)
Quarter: 2010Q2

REPORT INFORMATION
  Report Type: 
  Country: None (occurrence: None)
  Receive Date: 20100506
  Receipt Date: 20100424
  Transmission Date: 20101027
  Serious: Yes (Hospitalization)
  Sender: FDA-Public Use
  Company Number: 2010AP000873

PATIENT
  Age: 17 Year
  Sex: Female

DRUGS (4)
  1. AMLODIPINE BESYLATE [Suspect]
     Dosage: 290 MG
  2. METOPROLOL (METOPROLOL) [Suspect]
     Dosage: 500 MG
  3. VERAPAMIL [Suspect]
     Dosage: 2400 MG
  4. IBUPROFEN [Suspect]
     Dosage: 4400 MG

REACTIONS (23)
  - ALANINE AMINOTRANSFERASE INCREASED [None]
  - ANURIA [None]
  - APNOEA [None]
  - ASPARTATE AMINOTRANSFERASE INCREASED [None]
  - BLOOD CREATININE INCREASED [None]
  - BLOOD UREA INCREASED [None]
  - BRADYCARDIA [None]
  - CARDIOGENIC SHOCK [None]
  - COLD SWEAT [None]
  - COMA [None]
  - DIZZINESS [None]
  - HYPERGLYCAEMIA [None]
  - HYPERKALAEMIA [None]
  - HYPOPERFUSION [None]
  - HYPOTENSION [None]
  - INTENTIONAL OVERDOSE [None]
  - METABOLIC ACIDOSIS [None]
  - MIOSIS [None]
  - NAUSEA [None]
  - PULMONARY OEDEMA [None]
  - SOMNOLENCE [None]
  - SUICIDE ATTEMPT [None]
  - VENTRICULAR FIBRILLATION [None]
